FAERS Safety Report 9479116 (Version 1)
Quarter: 2013Q3

REPORT INFORMATION
  Report Type: Spontaneous
  Country: JP (occurrence: JP)
  Receive Date: 20130827
  Receipt Date: 20130827
  Transmission Date: 20140515
  Serious: Yes (Other)
  Sender: FDA-Public Use
  Company Number: JP-GLAXOSMITHKLINE-B0917563A

PATIENT
  Age: 5 Decade
  Sex: Male

DRUGS (2)
  1. SERETIDE (50MCG/250MCG) [Suspect]
     Indication: PRODUCT USED FOR UNKNOWN INDICATION
     Route: 055
  2. SERETIDE (50MCG/500MCG) [Suspect]
     Indication: PRODUCT USED FOR UNKNOWN INDICATION
     Route: 055

REACTIONS (1)
  - Tuberculosis [Unknown]
